FAERS Safety Report 6984993-4 (Version None)
Quarter: 2010Q3

REPORT INFORMATION
  Report Type: 
  Country: None (occurrence: None)
  Receive Date: 20100915
  Receipt Date: 20100730
  Transmission Date: 20110219
  Serious: Yes (Other)
  Sender: FDA-Public Use
  Company Number: PHHY2010IR52705

PATIENT
  Weight: 155 kg

DRUGS (2)
  1. NEORAL [Suspect]
     Indication: SKIN DISORDER
     Dosage: 500 MG/DAY
  2. NEORAL [Suspect]
     Dosage: 300 MG/DAY

REACTIONS (2)
  - BLOOD PRESSURE INCREASED [None]
  - CARDIAC DISORDER [None]
